FAERS Safety Report 23997202 (Version 1)
Quarter: 2024Q2

REPORT INFORMATION
  Report Type: Spontaneous
  Country: CN (occurrence: CN)
  Receive Date: 20240621
  Receipt Date: 20240621
  Transmission Date: 20240716
  Serious: Yes (Other)
  Sender: FDA-Public Use
  Company Number: CN-ABBVIE-5804598

PATIENT
  Age: 36 Year
  Sex: Male
  Weight: 54 kg

DRUGS (6)
  1. VENETOCLAX [Suspect]
     Active Substance: VENETOCLAX
     Indication: Neoplasm malignant
     Dosage: 400 MILLIGRAM
     Route: 048
     Dates: start: 20240523, end: 20240605
  2. DECITABINE [Suspect]
     Active Substance: DECITABINE
     Indication: Neoplasm malignant
     Dosage: 40 MILLIGRAM
     Route: 041
     Dates: start: 20240523, end: 20240527
  3. SODIUM CHLORIDE [Concomitant]
     Active Substance: SODIUM CHLORIDE
     Indication: Vehicle solution use
     Dosage: 250 MILLILITER
     Route: 041
     Dates: start: 20240523, end: 20240527
  4. STERILE WATER [Concomitant]
     Active Substance: WATER
     Indication: Vehicle solution use
     Dosage: 5 MILLILITER, FOR INJECTION
     Route: 041
     Dates: start: 20240523, end: 20240527
  5. DEXTROSE [Concomitant]
     Active Substance: DEXTROSE\DEXTROSE MONOHYDRATE
     Indication: Vehicle solution use
     Dosage: 250 MILLILITER
     Route: 041
     Dates: start: 20240523, end: 20240529
  6. OMACETAXINE MEPESUCCINATE [Suspect]
     Active Substance: OMACETAXINE MEPESUCCINATE
     Indication: Neoplasm malignant
     Dosage: 2 MILLIGRAM
     Route: 041
     Dates: start: 20240523, end: 20240529

REACTIONS (1)
  - Myelosuppression [Unknown]

NARRATIVE: CASE EVENT DATE: 20240603
